FAERS Safety Report 6594183-5 (Version None)
Quarter: 2010Q1

REPORT INFORMATION
  Report Type: 
  Country: None (occurrence: None)
  Receive Date: 20100222
  Receipt Date: 20100216
  Transmission Date: 20100710
  Serious: Yes (Death, Life-Threatening, Hospitalization)
  Sender: FDA-Public Use
  Company Number: US-ELI_LILLY_AND_COMPANY-US201002004678

PATIENT
  Sex: Male
  Weight: 90.703 kg

DRUGS (1)
  1. PEMETREXED [Suspect]
     Indication: NON-SMALL CELL LUNG CANCER
     Dosage: 1074 MG, UNK
     Dates: start: 20081216, end: 20081216

REACTIONS (8)
  - ATRIAL FIBRILLATION [None]
  - ATRIAL FLUTTER [None]
  - CHEST DISCOMFORT [None]
  - DECREASED APPETITE [None]
  - DEHYDRATION [None]
  - DYSPHAGIA [None]
  - RESPIRATORY DISTRESS [None]
  - VOMITING [None]
